FAERS Safety Report 6141502-X (Version None)
Quarter: 2009Q1

REPORT INFORMATION
  Report Type: 
  Country: None (occurrence: None)
  Receive Date: 20090331
  Receipt Date: 20090318
  Transmission Date: 20090719
  Serious: Yes (Hospitalization)
  Sender: FDA-Public Use
  Company Number: GXKR2009BR03433

PATIENT
  Age: 2 Year
  Sex: Female

DRUGS (3)
  1. AMOXICILLIN [Suspect]
     Indication: BRONCHOPNEUMONIA
  2. CEFTRIAXONE [Suspect]
     Indication: BRONCHOPNEUMONIA
     Dosage: 100 MG/KG
  3. OXACILLIN [Suspect]
     Dosage: 200 MG/KG,

REACTIONS (8)
  - ALANINE AMINOTRANSFERASE INCREASED [None]
  - ASPARTATE AMINOTRANSFERASE INCREASED [None]
  - CARDIAC MURMUR [None]
  - DRUG RASH WITH EOSINOPHILIA AND SYSTEMIC SYMPTOMS [None]
  - HEPATOSPLENOMEGALY [None]
  - OEDEMA PERIPHERAL [None]
  - PANCYTOPENIA [None]
  - VASCULITIS [None]
